FAERS Safety Report 9409911 (Version 1)
Quarter: 2013Q3

REPORT INFORMATION
  Report Type: Report from Study
  Country: US (occurrence: US)
  Receive Date: 20130719
  Receipt Date: 20130719
  Transmission Date: 20140515
  Serious: Yes (Other)
  Sender: FDA-Public Use
  Company Number: US-ELI_LILLY_AND_COMPANY-US201307005090

PATIENT
  Sex: Female

DRUGS (1)
  1. OLANZAPINE LONG-ACTING IM [Suspect]
     Dosage: UNK
     Dates: end: 201303

REACTIONS (1)
  - Hypotension [Unknown]
